FAERS Safety Report 25841106 (Version 3)
Quarter: 2025Q4

REPORT INFORMATION
  Report Type: Report from Study
  Country: US (occurrence: US)
  Receive Date: 20250924
  Receipt Date: 20251222
  Transmission Date: 20260117
  Serious: Yes (Other)
  Sender: BIOCODEX
  Company Number: US-BIOCODEX2-2025001478

PATIENT
  Age: 20 Year
  Sex: Female
  Weight: 78.7 kg

DRUGS (30)
  1. DIACOMIT [Suspect]
     Active Substance: STIRIPENTOL
     Indication: Severe myoclonic epilepsy of infancy
     Dosage: TAKE 1250 MG AND 1500 MG BY MOUTH IN SEPARATE DOSES EACH DAY
     Dates: start: 20230520
  2. DIACOMIT [Suspect]
     Active Substance: STIRIPENTOL
     Dosage: TAKE 1500 MG BY MOUTH TWICE DAILY
     Dates: start: 20230520
  3. DIACOMIT [Suspect]
     Active Substance: STIRIPENTOL
     Route: 048
  4. DIACOMIT [Suspect]
     Active Substance: STIRIPENTOL
     Route: 048
  5. CLOBAZAM [Concomitant]
     Active Substance: CLOBAZAM
     Indication: Severe myoclonic epilepsy of infancy
  6. CLOBAZAM [Concomitant]
     Active Substance: CLOBAZAM
  7. EPIDIOLEX [Concomitant]
     Active Substance: CANNABIDIOL
     Indication: Product used for unknown indication
  8. EPIDIOLEX [Concomitant]
     Active Substance: CANNABIDIOL
  9. IBUPROFEN [Concomitant]
     Active Substance: IBUPROFEN
     Indication: Product used for unknown indication
  10. IBUPROFEN [Concomitant]
     Active Substance: IBUPROFEN
  11. FERROUS GLUCONATE [Concomitant]
     Active Substance: FERROUS GLUCONATE
     Indication: Product used for unknown indication
  12. FERROUS GLUCONATE [Concomitant]
     Active Substance: FERROUS GLUCONATE
  13. MIDAZOLAM [Concomitant]
     Active Substance: MIDAZOLAM
     Indication: Product used for unknown indication
  14. MIDAZOLAM [Concomitant]
     Active Substance: MIDAZOLAM
  15. NAPROXEN [Concomitant]
     Active Substance: NAPROXEN
     Indication: Product used for unknown indication
  16. NAPROXEN [Concomitant]
     Active Substance: NAPROXEN
  17. TOPAMAX [Concomitant]
     Active Substance: TOPIRAMATE
     Indication: Product used for unknown indication
  18. TOPAMAX [Concomitant]
     Active Substance: TOPIRAMATE
  19. TYLENOL Childrens Chewables [Concomitant]
     Indication: Product used for unknown indication
  20. TYLENOL Childrens Chewables [Concomitant]
  21. VITAMIN D3 [Concomitant]
     Active Substance: CHOLECALCIFEROL
     Indication: Product used for unknown indication
  22. VITAMIN D3 [Concomitant]
     Active Substance: CHOLECALCIFEROL
  23. ZYRTEC Childrens Allergy [Concomitant]
     Indication: Product used for unknown indication
  24. ZYRTEC Childrens Allergy [Concomitant]
  25. ABILIFY [Concomitant]
     Active Substance: ARIPIPRAZOLE
     Indication: Product used for unknown indication
  26. ABILIFY [Concomitant]
     Active Substance: ARIPIPRAZOLE
  27. GUANFACINE [Concomitant]
     Active Substance: GUANFACINE
     Indication: Product used for unknown indication
  28. GUANFACINE [Concomitant]
     Active Substance: GUANFACINE
  29. LEXAPRO [Concomitant]
     Active Substance: ESCITALOPRAM OXALATE
     Indication: Product used for unknown indication
  30. LEXAPRO [Concomitant]
     Active Substance: ESCITALOPRAM OXALATE

REACTIONS (2)
  - Seizure [Unknown]
  - Off label use [Unknown]

NARRATIVE: CASE EVENT DATE: 20250729
